FAERS Safety Report 9162138 (Version 1)
Quarter: 2013Q1

REPORT INFORMATION
  Report Type: Spontaneous
  Country: JP (occurrence: JP)
  Receive Date: 20130314
  Receipt Date: 20130314
  Transmission Date: 20140127
  Serious: Yes (Other)
  Sender: FDA-Public Use
  Company Number: JP-GENZYME-THYM-1003699

PATIENT
  Age: 20 Year
  Sex: Female

DRUGS (2)
  1. THYMOGLOBULINE [Suspect]
     Indication: BONE MARROW CONDITIONING REGIMEN
     Dosage: 5 MG/KG, UNK
     Route: 065
  2. CYCLOPHOSPHAMIDE [Concomitant]
     Indication: BONE MARROW CONDITIONING REGIMEN
     Dosage: 200 MG/KG, UNK
     Route: 065

REACTIONS (3)
  - Engraft failure [Unknown]
  - Pericardial effusion [Recovered/Resolved]
  - Cystitis haemorrhagic [Recovered/Resolved]
